FAERS Safety Report 10029411 (Version 1)
Quarter: 2014Q1

REPORT INFORMATION
  Report Type: Report from Study
  Country: BR (occurrence: BR)
  Receive Date: 20140322
  Receipt Date: 20140322
  Transmission Date: 20141002
  Serious: Yes (Other)
  Sender: FDA-Public Use
  Company Number: PHHY2014BR031810

PATIENT
  Sex: Female
  Weight: 69 kg

DRUGS (3)
  1. GALVUS MET [Suspect]
     Indication: DIABETES MELLITUS
     Dosage: 2 DF, (1 IN MORNING AND 1 IN NIGHT)
  2. DIOVAN [Suspect]
     Indication: HYPERTENSION
     Dosage: 1 DF (80 MG), DAILY
  3. DIAMICRON MR [Concomitant]
     Indication: DIABETES MELLITUS
     Dosage: 1 DF (30 MG), DAILY

REACTIONS (5)
  - Cataract [Unknown]
  - Hypotonia [Unknown]
  - Body surface area decreased [Unknown]
  - Body height decreased [Unknown]
  - Blood glucose decreased [Unknown]
